FAERS Safety Report 10073447 (Version 2)
Quarter: 2014Q2

REPORT INFORMATION
  Report Type: Spontaneous
  Country: JP (occurrence: JP)
  Receive Date: 20140411
  Receipt Date: 20140411
  Transmission Date: 20141212
  Serious: Yes (Death, Disabling, Other)
  Sender: FDA-Public Use
  Company Number: JP-TAKEDA-TCI2012A00379

PATIENT
  Age: 72 Year
  Sex: Female
  Weight: 52.2 kg

DRUGS (11)
  1. TAKEPRON OD TABLETS 15 [Suspect]
     Indication: PROPHYLAXIS AGAINST GASTROINTESTINAL ULCER
     Dosage: 15 MG, QD
     Route: 048
     Dates: start: 20111026, end: 20111108
  2. AMLODIN [Concomitant]
     Indication: HYPERTENSION
     Dosage: 5 MG, QD
     Route: 048
     Dates: start: 20110907, end: 20111203
  3. OLMETEC [Concomitant]
     Indication: HYPERTENSION
     Dosage: 10 MG, QD
     Route: 048
     Dates: start: 20110907, end: 20111203
  4. PIROLACTON [Concomitant]
     Indication: OEDEMA
     Dosage: 25 MG, QD
     Route: 048
     Dates: start: 20110907, end: 20111115
  5. FUROSEMIDE [Concomitant]
     Indication: OEDEMA
     Dosage: 20 MG, QD
     Route: 048
     Dates: start: 20110907, end: 20111203
  6. DEPAS [Concomitant]
     Indication: INSOMNIA
     Dosage: 0.5 MG, QD
     Route: 048
     Dates: start: 20110907, end: 20111108
  7. PERSANTIN [Concomitant]
     Indication: PROTEINURIA
     Dosage: 100 MG, TID
     Route: 048
     Dates: start: 20110907, end: 20111108
  8. DAIOKANZOTO [Concomitant]
     Indication: CONSTIPATION
     Dosage: 2.5 G, QD
     Route: 048
     Dates: start: 20110829, end: 20111203
  9. MUCOSTA [Concomitant]
     Indication: GASTRITIS
     Dosage: 100 MG, TID
     Route: 048
     Dates: start: 20111026, end: 20111203
  10. PREDONINE                          /00016201/ [Concomitant]
     Indication: RENAL FAILURE CHRONIC
     Dosage: 30 MG, BID
     Route: 048
     Dates: start: 20111026, end: 20111109
  11. PREDONINE                          /00016201/ [Concomitant]
     Indication: PROTEINURIA
     Dosage: 15 MG, 1 DAYS
     Route: 048
     Dates: start: 20111109, end: 20111203

REACTIONS (3)
  - Interstitial lung disease [Fatal]
  - Renal failure chronic [Not Recovered/Not Resolved]
  - Stevens-Johnson syndrome [Unknown]
